FAERS Safety Report 10109584 (Version 1)
Quarter: 2014Q2

REPORT INFORMATION
  Report Type: Spontaneous
  Country: GB (occurrence: None)
  Receive Date: 20140423
  Receipt Date: 20140423
  Transmission Date: 20141212
  Serious: Yes (Hospitalization)
  Sender: FDA-Public Use
  Company Number: FK201401365

PATIENT
  Age: 28 Year
  Sex: 0

DRUGS (10)
  1. PENTAMIDINE [Suspect]
     Indication: PRODUCT USED FOR UNKNOWN INDICATION
     Route: 045
     Dates: start: 20120503
  2. MEROPENEM (MEROPENEM) [Suspect]
     Indication: NEUTROPENIC SEPSIS
     Route: 041
     Dates: start: 20120506, end: 20120514
  3. AMBISOME [Suspect]
     Indication: PRODUCT USED FOR UNKNOWN INDICATION
     Route: 041
     Dates: start: 20120428, end: 20120523
  4. CIPROFLOXACIN (CIPROFLOXACIN) [Suspect]
     Indication: NEUTROPENIC SEPSIS
     Route: 048
     Dates: start: 20120514, end: 20120521
  5. AMOXICILLIN /CLAVULANIC ACID [Suspect]
     Indication: PRODUCT USED FOR UNKNOWN INDICATION
     Route: 048
     Dates: start: 20120523, end: 20120530
  6. GENTAMICIN [Suspect]
     Indication: PRODUCT USED FOR UNKNOWN INDICATION
     Route: 041
     Dates: start: 20120523
  7. ITRACONAZOLE [Suspect]
     Indication: NEUTROPENIC SEPSIS
     Dates: start: 20120419, end: 20120428
  8. TAZOCIN [Suspect]
     Indication: PRODUCT USED FOR UNKNOWN INDICATION
     Route: 041
     Dates: start: 20120503, end: 20120506
  9. LANSOPRAZOLE (LANSOPRAZOLE) [Concomitant]
  10. PANTOPRAZOLE (PANTOPRAZOLE) [Concomitant]

REACTIONS (1)
  - Clostridium difficile infection [None]
